FAERS Safety Report 17445039 (Version 1)
Quarter: 2020Q1

REPORT INFORMATION
  Report Type: Spontaneous
  Country: CN (occurrence: CN)
  Receive Date: 20200221
  Receipt Date: 20200221
  Transmission Date: 20200409
  Serious: Yes (Other)
  Sender: FDA-Public Use
  Company Number: CN-BAXTER-2020BAX003738

PATIENT
  Age: 42 Year
  Sex: Female
  Weight: 61.5 kg

DRUGS (13)
  1. ENDOXAN [Suspect]
     Active Substance: CYCLOPHOSPHAMIDE
     Dosage: FOURTH CYCLE OF CHEMOTHERAPY, CYCLOPHOSPHAMIDE + SODIUM CHLORIDE (NS) 45 ML
     Route: 041
     Dates: start: 20191129, end: 20191129
  2. 0.9% SODIUM CHLORIDE INJECTION [Suspect]
     Active Substance: SODIUM CHLORIDE
     Dosage: DOSE RE-INTRODUCED, PIRARUBICIN HYDROCHLORIDE + SODIUM CHLORIDE (NS)
     Route: 041
  3. 0.9% SODIUM CHLORIDE INJECTION [Suspect]
     Active Substance: SODIUM CHLORIDE
     Dosage: DOSE RE-INTRODUCED, CYCLOPHOSPHAMIDE + SODIUM CHLORIDE (NS)
     Route: 041
  4. ENDOXAN [Suspect]
     Active Substance: CYCLOPHOSPHAMIDE
     Dosage: DOSE RE-INTRODUCED, CYCLOPHOSPHAMIDE + SODIUM CHLORIDE (NS)
     Route: 041
  5. ENDOXAN [Suspect]
     Active Substance: CYCLOPHOSPHAMIDE
     Indication: BREAST CANCER FEMALE
     Dosage: FIRST TO THIRD CYCLE OF CHEMOTHERAPY, CYCLOPHOSPHAMIDE + SODIUM CHLORIDE (NS)
     Route: 041
  6. 0.9% SODIUM CHLORIDE INJECTION [Suspect]
     Active Substance: SODIUM CHLORIDE
     Indication: MEDICATION DILUTION
     Dosage: FIRST TO THIRD CYCLE OF CHEMOTHERAPY, CYCLOPHOSPHAMIDE + SODIUM CHLORIDE (NS)
     Route: 041
  7. 0.9% SODIUM CHLORIDE INJECTION [Suspect]
     Active Substance: SODIUM CHLORIDE
     Dosage: FOURTH CYCLE OF CHEMOTHERAPY, CYCLOPHOSPHAMIDE 900 MG + SODIUM CHLORIDE (NS)
     Route: 041
     Dates: start: 20191129, end: 20191129
  8. AIDASHENG [Suspect]
     Active Substance: EPIRUBICIN HYDROCHLORIDE
     Indication: BREAST CANCER FEMALE
     Dosage: FIRST TO THIRD CYCLE OF CHEMOTHERAPY, PIRARUBICIN HYDROCHLORIDE + SODIUM CHLORIDE (NS)
     Route: 041
  9. JINYAOLIXIN RUIBAI [Concomitant]
     Indication: PROPHYLAXIS
     Route: 058
     Dates: start: 20191130
  10. AIDASHENG [Suspect]
     Active Substance: EPIRUBICIN HYDROCHLORIDE
     Dosage: DOSE RE-INTRODUCED, PIRARUBICIN HYDROCHLORIDE + SODIUM CHLORIDE (NS)
     Route: 041
  11. 0.9% SODIUM CHLORIDE INJECTION [Suspect]
     Active Substance: SODIUM CHLORIDE
     Dosage: FIRST TO THIRD CYCLE OF CHEMOTHERAPY, PIRARUBICIN HYDROCHLORIDE + SODIUM CHLORIDE (NS)
     Route: 041
  12. 0.9% SODIUM CHLORIDE INJECTION [Suspect]
     Active Substance: SODIUM CHLORIDE
     Dosage: FOURTH CYCLE OF CHEMOTHERAPY, PIRARUBICIN HYDROCHLORIDE 138 MG+ SODIUM CHLORIDE (NS)
     Route: 041
     Dates: start: 20191129, end: 20191129
  13. AIDASHENG [Suspect]
     Active Substance: EPIRUBICIN HYDROCHLORIDE
     Dosage: FOURTH CYCLE OF CHEMOTHERAPY, PIRARUBICIN HYDROCHLORIDE + SODIUM CHLORIDE (NS) 100 ML
     Route: 041
     Dates: start: 20191129, end: 20191129

REACTIONS (2)
  - White blood cell count decreased [Recovering/Resolving]
  - Agranulocytosis [Recovering/Resolving]

NARRATIVE: CASE EVENT DATE: 20191206
